FAERS Safety Report 13360362 (Version 2)
Quarter: 2019Q3

REPORT INFORMATION
  Report Type: Spontaneous
  Country: FR (occurrence: FR)
  Receive Date: 20170322
  Receipt Date: 20190719
  Transmission Date: 20191004
  Serious: Yes (Hospitalization, Other)
  Sender: FDA-Public Use
  Company Number: FR-PFIZER INC-2017117189

PATIENT
  Age: 36 Year
  Sex: Male
  Weight: 111 kg

DRUGS (11)
  1. BISOPROLOL/HYDROCHLOROTHIAZID [Concomitant]
     Dosage: UNK
  2. PARACETAMOL [Concomitant]
     Active Substance: ACETAMINOPHEN
     Dosage: UNK
     Dates: start: 20170210, end: 20170225
  3. TRAMADOL. [Concomitant]
     Active Substance: TRAMADOL
     Dosage: UNK
     Dates: start: 20170210, end: 20170227
  4. DALACINE [Suspect]
     Active Substance: CLINDAMYCIN
     Indication: INFECTION
     Dosage: 900 MG, 3X/DAY
     Route: 048
     Dates: start: 20170215, end: 20170227
  5. PIPERACILLIN AND TAZOBACTAM [Concomitant]
     Active Substance: PIPERACILLIN SODIUM\TAZOBACTAM SODIUM
     Dosage: UNK
     Dates: start: 20170210, end: 20170214
  6. LINEZOLID. [Concomitant]
     Active Substance: LINEZOLID
     Dosage: UNK
     Dates: start: 20170210, end: 20170214
  7. KARDEGIC [Concomitant]
     Active Substance: ASPIRIN DL-LYSINE
     Dosage: 75 MG, DAILY
  8. DOXYCYCLINE. [Suspect]
     Active Substance: DOXYCYCLINE
     Indication: INFECTION
     Dosage: 200 MG, DAILY
     Route: 048
     Dates: start: 20170215, end: 20170227
  9. AMPHOTERICIN B. [Concomitant]
     Active Substance: AMPHOTERICIN B
     Dosage: UNK
     Dates: start: 20170215, end: 20170227
  10. NEURONTIN [Suspect]
     Active Substance: GABAPENTIN
     Indication: PAIN
     Dosage: 900 MG, DAILY
     Route: 048
     Dates: start: 20170202, end: 20170227
  11. DULOXETINE. [Suspect]
     Active Substance: DULOXETINE
     Indication: DEPRESSION
     Dosage: 60 MG, UNK
     Route: 048
     Dates: start: 20170202, end: 20170227

REACTIONS (1)
  - Hepatocellular injury [Recovered/Resolved]

NARRATIVE: CASE EVENT DATE: 20170224
